FAERS Safety Report 12725250 (Version 1)
Quarter: 2016Q3

REPORT INFORMATION
  Report Type: Spontaneous
  Country: JP (occurrence: JP)
  Receive Date: 20160908
  Receipt Date: 20160908
  Transmission Date: 20161109
  Serious: Yes (Other)
  Sender: FDA-Public Use
  Company Number: JP-PFIZER INC-2016419077

PATIENT
  Age: 74 Year
  Sex: Male

DRUGS (2)
  1. CELECOX [Suspect]
     Active Substance: CELECOXIB
     Indication: SCIATICA
     Dosage: 100 MG TWICE DAILY
     Route: 048
  2. TRAMAL [Suspect]
     Active Substance: TRAMADOL
     Indication: SCIATICA
     Dosage: 25 MG THRICE DAILY
     Route: 048

REACTIONS (1)
  - Urinary retention [Unknown]

NARRATIVE: CASE EVENT DATE: 20160901
